FAERS Safety Report 10832230 (Version 2)
Quarter: 2015Q1

REPORT INFORMATION
  Report Type: Report from Study
  Country: ES (occurrence: ES)
  Receive Date: 20150219
  Receipt Date: 20150325
  Transmission Date: 20150721
  Serious: Yes (Other)
  Sender: FDA-Public Use
  Company Number: ES-JNJFOC-20141102578

PATIENT
  Age: 70 Year
  Sex: Male

DRUGS (3)
  1. ABIRATERONE [Suspect]
     Active Substance: ABIRATERONE
     Indication: PROSTATE CANCER METASTATIC
     Dosage: FIRST LINE TREATMENT
     Route: 048
     Dates: start: 20140326, end: 201408
  2. ZOLEDRONIC ACID [Suspect]
     Active Substance: ZOLEDRONIC ACID
     Indication: PROSTATE CANCER METASTATIC
     Dosage: FIRST LINE TREATMENT
     Route: 065
     Dates: end: 201407
  3. PREDNISONE. [Suspect]
     Active Substance: PREDNISONE
     Indication: PROSTATE CANCER METASTATIC
     Dosage: FIRST LINE TREATMENT
     Route: 065
     Dates: start: 20140326

REACTIONS (4)
  - Blood potassium decreased [Recovered/Resolved]
  - Obstructive uropathy [Unknown]
  - Prostate cancer metastatic [Not Recovered/Not Resolved]
  - Acute kidney injury [Unknown]

NARRATIVE: CASE EVENT DATE: 201407
